FAERS Safety Report 15811609 (Version 3)
Quarter: 2020Q1

REPORT INFORMATION
  Report Type: Spontaneous
  Country: US (occurrence: US)
  Receive Date: 20190111
  Receipt Date: 20200124
  Transmission Date: 20200409
  Serious: Yes (Other)
  Sender: FDA-Public Use
  Company Number: US-PFIZER INC-2019009471

PATIENT
  Age: 61 Year
  Sex: Female
  Weight: 82.5 kg

DRUGS (3)
  1. XELJANZ XR [Suspect]
     Active Substance: TOFACITINIB CITRATE
     Indication: RHEUMATOID ARTHRITIS
     Dosage: 11 MG, DAILY (ONE TABLET BY MOUTH DAILY)
     Route: 048
  2. NORVASC [Concomitant]
     Active Substance: AMLODIPINE BESYLATE
     Dosage: UNK
  3. LISINOPRIL. [Concomitant]
     Active Substance: LISINOPRIL
     Indication: BLOOD PRESSURE ABNORMAL
     Dosage: 20 MG, 1X/DAY

REACTIONS (4)
  - Lower respiratory tract infection [Unknown]
  - Influenza [Unknown]
  - Malaise [Unknown]
  - Cough [Unknown]

NARRATIVE: CASE EVENT DATE: 201811
